FAERS Safety Report 13286011 (Version 1)
Quarter: 2017Q1

REPORT INFORMATION
  Report Type: Spontaneous
  Country: US (occurrence: US)
  Receive Date: 20170301
  Receipt Date: 20170301
  Transmission Date: 20170428
  Serious: Yes (Life-Threatening)
  Sender: FDA-Public Use
  Company Number: US-SAGENTPRD-2017-US-000029

PATIENT
  Age: 57 Year
  Sex: Male
  Weight: 70.31 kg

DRUGS (8)
  1. OXYCODONE-ACETAMINOPHEN 5-325 [Concomitant]
     Active Substance: ACETAMINOPHEN\OXYCODONE HYDROCHLORIDE
     Dosage: 1-2 TABLETS Q4H PRN
  2. HEPARIN SODIUM INJECTION, MDV, 30 ML, 1000 U/ML [Suspect]
     Active Substance: HEPARIN SODIUM
     Dosage: UNKNOWN
  3. METFORMIN [Concomitant]
     Active Substance: METFORMIN HYDROCHLORIDE
     Dosage: 1000 MG BID
  4. SENNA [Concomitant]
     Active Substance: SENNA LEAF\SENNOSIDES\SENNOSIDES A AND B
     Dosage: 17.2 MG QHS
  5. DOCUSAGE SODIUM [Concomitant]
     Dosage: 100 MG BID
  6. IBUPROFEN. [Concomitant]
     Active Substance: IBUPROFEN
     Dosage: 800 MG Q6H
  7. ASPIRIN, CHEWABLE [Concomitant]
     Dosage: 81 MG DAILY
  8. REGULAR INSULIN [Concomitant]
     Active Substance: INSULIN NOS
     Dosage: DAILY

REACTIONS (2)
  - Thrombotic stroke [Unknown]
  - Drug ineffective [Unknown]

NARRATIVE: CASE EVENT DATE: 20170217
